FAERS Safety Report 4679371-7 (Version None)
Quarter: 2005Q2

REPORT INFORMATION
  Report Type: 
  Country: None (occurrence: None)
  Receive Date: 20050602
  Receipt Date: 20050211
  Transmission Date: 20051028
  Serious: Yes (Life-Threatening)
  Sender: FDA-Public Use
  Company Number: FR-GLAXOSMITHKLINE-B0371290A

PATIENT
  Age: 80 Year
  Sex: Female
  Weight: 67 kg

DRUGS (1)
  1. VALACYCLOVIR HCL [Suspect]
     Dosage: 500MG SINGLE DOSE
     Route: 048
     Dates: start: 20050126

REACTIONS (2)
  - BRADYCARDIA [None]
  - SYNCOPE VASOVAGAL [None]
